FAERS Safety Report 20879598 (Version 5)
Quarter: 2022Q2

REPORT INFORMATION
  Report Type: Spontaneous
  Country: CA (occurrence: CA)
  Receive Date: 20220526
  Receipt Date: 20220627
  Transmission Date: 20220721
  Serious: Yes (Other)
  Sender: FDA-Public Use
  Company Number: CA-PFIZER INC-202200560267

PATIENT
  Age: 38 Year
  Sex: Male
  Weight: 82 kg

DRUGS (20)
  1. RUXIENCE [Suspect]
     Active Substance: RITUXIMAB-PVVR
     Indication: Immune thrombocytopenia
     Dosage: 375 MG/M2 WEEKLY X4
     Route: 042
  2. RUXIENCE [Suspect]
     Active Substance: RITUXIMAB-PVVR
     Dosage: 272.5 MG Q WEEKLY X 4 (LEFT FOREARM)
     Route: 042
     Dates: start: 20220517
  3. RUXIENCE [Suspect]
     Active Substance: RITUXIMAB-PVVR
     Dosage: 500 MG (LEFT FOREARM )
     Route: 042
     Dates: start: 20220517
  4. RUXIENCE [Suspect]
     Active Substance: RITUXIMAB-PVVR
     Dosage: 375 MG/M2 WEEKLY X4
     Route: 042
     Dates: start: 20220517, end: 20220606
  5. RUXIENCE [Suspect]
     Active Substance: RITUXIMAB-PVVR
     Dosage: 375 MG/M2 WEEKLY X4
     Route: 042
     Dates: start: 20220517
  6. RUXIENCE [Suspect]
     Active Substance: RITUXIMAB-PVVR
     Dosage: 500 MG (LEFT FOREARM )
     Route: 042
     Dates: start: 20220524
  7. RUXIENCE [Suspect]
     Active Substance: RITUXIMAB-PVVR
     Dosage: 272.5 MG (LEFT ANTECUBITAL)
     Route: 042
     Dates: start: 20220524
  8. RUXIENCE [Suspect]
     Active Substance: RITUXIMAB-PVVR
     Dosage: 772.5 MG, (LEFT FOREARM)
     Route: 042
     Dates: start: 20220530
  9. RUXIENCE [Suspect]
     Active Substance: RITUXIMAB-PVVR
     Dosage: 772.5 MG, (LEFT FOREARM)
     Route: 042
     Dates: start: 20220606
  10. ACETAMINOPHEN [Concomitant]
     Active Substance: ACETAMINOPHEN
     Indication: Premedication
     Dosage: 650 MG
     Route: 030
     Dates: start: 20220517
  11. ACETAMINOPHEN [Concomitant]
     Active Substance: ACETAMINOPHEN
     Dosage: 650 MG
     Route: 030
     Dates: start: 20220524
  12. ACETAMINOPHEN [Concomitant]
     Active Substance: ACETAMINOPHEN
     Dosage: 650MG
     Route: 048
     Dates: start: 20220530
  13. DIPHENHYDRAMINE [Concomitant]
     Active Substance: DIPHENHYDRAMINE
     Indication: Premedication
     Dosage: 50 UG
     Route: 048
     Dates: start: 20220517
  14. DIPHENHYDRAMINE [Concomitant]
     Active Substance: DIPHENHYDRAMINE
     Dosage: 50 MG
     Route: 048
     Dates: start: 20220524
  15. DIPHENHYDRAMINE [Concomitant]
     Active Substance: DIPHENHYDRAMINE
     Dosage: 50 MG
     Route: 048
     Dates: start: 20220530
  16. DIPHENHYDRAMINE [Concomitant]
     Active Substance: DIPHENHYDRAMINE
     Dosage: UNK
  17. MONTELUKAST [Concomitant]
     Active Substance: MONTELUKAST SODIUM
     Indication: Premedication
     Dosage: 10 MG (TAKEN NIGHT BEFORE INFUSION AND 30MINS PRIOR TO INFUSION.)
     Route: 048
     Dates: start: 20220530
  18. PREDNISONE [Concomitant]
     Active Substance: PREDNISONE
     Dosage: 60 MG
     Route: 048
  19. PROMACTA [Concomitant]
     Active Substance: ELTROMBOPAG OLAMINE
     Dosage: 20 MG
     Route: 048
  20. RUPATADINE [Concomitant]
     Active Substance: RUPATADINE
     Indication: Premedication
     Dosage: 10 MG (NIGHT BEFORE AND 30MIN PRIOR TO INFUSION)
     Route: 048
     Dates: start: 20220530

REACTIONS (10)
  - Heart rate decreased [Recovered/Resolved]
  - Off label use [Unknown]
  - Inappropriate schedule of product administration [Unknown]
  - Blood pressure fluctuation [Recovered/Resolved]
  - Body temperature fluctuation [Recovered/Resolved]
  - Heart rate irregular [Recovered/Resolved]
  - Blood pressure decreased [Recovered/Resolved]
  - Body temperature decreased [Recovered/Resolved]
  - Heart rate irregular [Recovered/Resolved]
  - Vital functions abnormal [Recovered/Resolved]

NARRATIVE: CASE EVENT DATE: 20220517
